FAERS Safety Report 5925096-7 (Version None)
Quarter: 2008Q4

REPORT INFORMATION
  Report Type: 
  Country: None (occurrence: None)
  Receive Date: 20081021
  Receipt Date: 20081014
  Transmission Date: 20090506
  Serious: Yes (Other)
  Sender: FDA-Public Use
  Company Number: BR-JNJFOC-20081003686

PATIENT
  Sex: Female
  Weight: 16 kg

DRUGS (3)
  1. TYLENOL (CAPLET) [Suspect]
  2. TYLENOL (CAPLET) [Suspect]
     Indication: PYREXIA
  3. AMOXICILLIN [Concomitant]
     Indication: PHARYNGITIS

REACTIONS (1)
  - VOMITING [None]
